FAERS Safety Report 13251593 (Version 1)
Quarter: 2017Q1

REPORT INFORMATION
  Report Type: Spontaneous
  Country: US (occurrence: US)
  Receive Date: 20170220
  Receipt Date: 20170220
  Transmission Date: 20170428
  Serious: Yes (Other)
  Sender: FDA-Public Use
  Company Number: US-AUROBINDO-AUR-APL-2017-29679

PATIENT
  Age: 24 Year
  Sex: Male

DRUGS (2)
  1. DEXAMETHASONE INJECTION [Suspect]
     Active Substance: DEXAMETHASONE
     Indication: MENIERE^S DISEASE
  2. DEXAMETHASONE INJECTION [Suspect]
     Active Substance: DEXAMETHASONE
     Indication: DEAFNESS NEUROSENSORY
     Route: 065

REACTIONS (3)
  - Tympanic membrane perforation [Unknown]
  - Incorrect route of drug administration [Unknown]
  - Product use issue [Unknown]
